FAERS Safety Report 6235901-5 (Version None)
Quarter: 2009Q2

REPORT INFORMATION
  Report Type: 
  Country: None (occurrence: None)
  Receive Date: 20090617
  Receipt Date: 20090617
  Transmission Date: 20091009
  Serious: No
  Sender: FDA-Public Use
  Company Number: None

PATIENT
  Age: 65 Year
  Sex: Female
  Weight: 68.0396 kg

DRUGS (1)
  1. COLDEEZE LOZENGES COLDEEZE [Suspect]
     Indication: NASOPHARYNGITIS
     Dosage: 3 LOZENGES DAILY PO
     Route: 048
     Dates: start: 19990101, end: 19990630

REACTIONS (2)
  - HYPOGEUSIA [None]
  - HYPOSMIA [None]
